FAERS Safety Report 20180814 (Version 5)
Quarter: 2023Q2

REPORT INFORMATION
  Report Type: Spontaneous
  Country: AU (occurrence: None)
  Receive Date: 20211214
  Receipt Date: 20230628
  Transmission Date: 20230721
  Serious: Yes (Other)
  Sender: FDA-Public Use
  Company Number: AU-ROCHE-2335748

PATIENT
  Sex: Female

DRUGS (12)
  1. ACTEMRA [Suspect]
     Active Substance: TOCILIZUMAB
     Indication: Juvenile idiopathic arthritis
     Dosage: STRENGTH:162 MG/0.9 ML
     Route: 058
  2. ROSUVASTATIN [Concomitant]
     Active Substance: ROSUVASTATIN
  3. IBUPROFEN [Concomitant]
     Active Substance: IBUPROFEN
     Dosage: NOCTE PRN
  4. ACETAMINOPHEN [Concomitant]
     Active Substance: ACETAMINOPHEN
     Dosage: NOCTE PRN
  5. AGOMELATINE [Concomitant]
     Active Substance: AGOMELATINE
     Dosage: NOCTE
  6. PREDNISONE [Concomitant]
     Active Substance: PREDNISONE
     Dosage: DAILY PRN - RESTARTED TODAY
  7. HYDROXYCHLOROQUINE [Concomitant]
     Active Substance: HYDROXYCHLOROQUINE
  8. METHOTREXATE [Concomitant]
     Active Substance: METHOTREXATE
  9. SULFASALAZINE [Concomitant]
     Active Substance: SULFASALAZINE
  10. ARAVA [Concomitant]
     Active Substance: LEFLUNOMIDE
  11. INFLIXIMAB [Concomitant]
     Active Substance: INFLIXIMAB
  12. BUTYLSCOPOLAMINE BROMIDE [Concomitant]
     Active Substance: BUTYLSCOPOLAMINE BROMIDE

REACTIONS (12)
  - Arthritis [Unknown]
  - Cardiac valve disease [Unknown]
  - Mitral valve incompetence [Unknown]
  - Uterine leiomyoma [Unknown]
  - Gastritis [Unknown]
  - Dyslipidaemia [Unknown]
  - Tinnitus [Unknown]
  - Insomnia [Unknown]
  - Osteoarthritis [Unknown]
  - Drug ineffective [Unknown]
  - COVID-19 [Unknown]
  - Rash [Unknown]

NARRATIVE: CASE EVENT DATE: 20230101
